FAERS Safety Report 7581261-7 (Version None)
Quarter: 2011Q2

REPORT INFORMATION
  Report Type: 
  Country: None (occurrence: None)
  Receive Date: 20110629
  Receipt Date: 20110627
  Transmission Date: 20111010
  Serious: Yes (Other)
  Sender: FDA-Public Use
  Company Number: JP-PFIZER INC-2011129664

PATIENT
  Age: 20 Year

DRUGS (7)
  1. MARZULENE ES [Concomitant]
     Route: 048
  2. ALENDRONATE SODIUM [Concomitant]
     Route: 048
  3. FLORINEF [Concomitant]
     Indication: ELECTROLYTE IMBALANCE
     Dosage: UNK
     Route: 048
     Dates: start: 20090601, end: 20110625
  4. DESMOPRESSIN [Concomitant]
     Route: 045
  5. CORTRIL [Suspect]
     Indication: ELECTROLYTE IMBALANCE
     Dosage: UNK
     Route: 048
     Dates: start: 20090601
  6. THYRADIN [Concomitant]
     Route: 048
  7. WARFARIN [Concomitant]
     Route: 048

REACTIONS (2)
  - HYPOKALAEMIA [None]
  - METABOLIC ACIDOSIS [None]
